FAERS Safety Report 5748421-9 (Version None)
Quarter: 2008Q2

REPORT INFORMATION
  Report Type: 
  Country: None (occurrence: None)
  Receive Date: 20080523
  Receipt Date: 20080520
  Transmission Date: 20081010
  Serious: Yes (Hospitalization, Other)
  Sender: FDA-Public Use
  Company Number: US-MERCK-0804USA00674

PATIENT
  Age: 14 Year
  Sex: Female
  Weight: 80 kg

DRUGS (5)
  1. SINGULAIR [Suspect]
     Indication: ASTHMA
     Route: 048
  2. ADVIL [Suspect]
     Route: 065
  3. SINGULAIR [Suspect]
     Route: 048
     Dates: start: 20020101
  4. ALBUTEROL [Concomitant]
  5. ALLEGRA [Concomitant]
     Route: 065

REACTIONS (2)
  - INTENTIONAL OVERDOSE [None]
  - SUICIDE ATTEMPT [None]
